FAERS Safety Report 6839701-4 (Version None)
Quarter: 2010Q3

REPORT INFORMATION
  Report Type: 
  Country: None (occurrence: None)
  Receive Date: 20100714
  Receipt Date: 20100707
  Transmission Date: 20110219
  Serious: Yes (Hospitalization)
  Sender: FDA-Public Use
  Company Number: US-BRISTOL-MYERS SQUIBB COMPANY-15186299

PATIENT
  Age: 83 Year
  Sex: Female
  Weight: 60 kg

DRUGS (4)
  1. AVAPRO [Suspect]
     Indication: HYPERTENSION
     Route: 048
     Dates: start: 20080101, end: 20090701
  2. ATENOLOL [Suspect]
     Indication: HYPERTENSION
     Route: 048
     Dates: start: 20080101, end: 20090701
  3. XALATAN [Suspect]
     Indication: GLAUCOMA
     Dosage: 1 DROP OF EYE DROP IN EACH EYE
     Route: 047
  4. FOSAMAX [Concomitant]
     Indication: BONE DISORDER
     Dates: start: 20060101

REACTIONS (4)
  - CONFUSIONAL STATE [None]
  - HALLUCINATION [None]
  - MENTAL DISORDER [None]
  - SYNCOPE [None]
